FAERS Safety Report 5231207-1 (Version None)
Quarter: 2007Q1

REPORT INFORMATION
  Report Type: 
  Country: None (occurrence: None)
  Receive Date: 20070205
  Receipt Date: 20070205
  Transmission Date: 20070707
  Serious: Yes (Hospitalization)
  Sender: FDA-Public Use
  Company Number: None

PATIENT
  Sex: Male
  Weight: 78.4723 kg

DRUGS (2)
  1. INTERFERON ALPHA 150MCG/0.5ML [Suspect]
     Indication: HEPATITIS C VIRUS
     Dosage: 15 MCG QD SC
     Route: 058
     Dates: start: 20060914
  2. INTERFERON ALPHA 150MCG/0.5ML [Suspect]
     Indication: HEPATITIS C VIRUS
     Dosage: 15 MCG QD SC
     Route: 058
     Dates: start: 20060925

REACTIONS (4)
  - BILIARY DILATATION [None]
  - DIARRHOEA [None]
  - GINGIVAL BLEEDING [None]
  - PANCREATITIS [None]
